FAERS Safety Report 24572851 (Version 1)
Quarter: 2024Q4

REPORT INFORMATION
  Report Type: Spontaneous
  Country: US (occurrence: None)
  Receive Date: 20241101
  Receipt Date: 20241101
  Transmission Date: 20250115
  Serious: Yes (Other)
  Sender: Public
  Company Number: None

PATIENT
  Age: 65 Year
  Sex: Female
  Weight: 50.85 kg

DRUGS (4)
  1. OCTAGAM IMMUNE GLOBULIN (HUMAN) [Suspect]
     Active Substance: HUMAN IMMUNOGLOBULIN G
     Indication: Pemphigus
     Dosage: 25 G GRM (S)  FOR 4D EVERY 16 W INTRAVENOUS?
     Route: 042
     Dates: start: 20220908
  2. Diphenhydramine 25 mg by mouth [Concomitant]
  3. Acetaminophen 650 mg by mouth [Concomitant]
  4. Methylprednisolone 10 mg IV [Concomitant]

REACTIONS (2)
  - Headache [None]
  - Middle insomnia [None]

NARRATIVE: CASE EVENT DATE: 20241017
